FAERS Safety Report 6731275-1 (Version None)
Quarter: 2010Q2

REPORT INFORMATION
  Report Type: 
  Country: None (occurrence: None)
  Receive Date: 20100517
  Receipt Date: 20100517
  Transmission Date: 20101027
  Serious: Yes (Other)
  Sender: FDA-Public Use
  Company Number: None

PATIENT
  Age: 42 Year
  Sex: Female
  Weight: 124.7392 kg

DRUGS (1)
  1. ORIGINAL PAIN RELIEVING LINIMENT  WATKINS [Suspect]
     Indication: MYALGIA
     Dates: start: 20100303, end: 20100303

REACTIONS (2)
  - APPLICATION SITE BURN [None]
  - CHEMICAL BURN OF SKIN [None]
